FAERS Safety Report 19777097 (Version 2)
Quarter: 2021Q3

REPORT INFORMATION
  Report Type: Spontaneous
  Country: PK (occurrence: PK)
  Receive Date: 20210902
  Receipt Date: 20210924
  Transmission Date: 20211014
  Serious: Yes (Other)
  Sender: FDA-Public Use
  Company Number: PK-NOVOPROD-842817

PATIENT
  Age: 600 Month
  Sex: Female
  Weight: 117 kg

DRUGS (1)
  1. NOVOMIX 30 FLEXPEN [Suspect]
     Active Substance: INSULIN ASPART
     Indication: TYPE 2 DIABETES MELLITUS
     Dosage: 96 UNTIS PER DAY
     Route: 058
     Dates: start: 20190215, end: 20210501

REACTIONS (4)
  - Shock [Recovering/Resolving]
  - Drug ineffective [Unknown]
  - Hyperglycaemia [Recovered/Resolved]
  - Hyperkalaemia [Recovering/Resolving]

NARRATIVE: CASE EVENT DATE: 202102
